FAERS Safety Report 23515006 (Version 2)
Quarter: 2024Q2

REPORT INFORMATION
  Report Type: Spontaneous
  Country: CA (occurrence: CA)
  Receive Date: 20240212
  Receipt Date: 20240521
  Transmission Date: 20240715
  Serious: Yes (Death)
  Sender: FDA-Public Use
  Company Number: CA-HLS-202400354

PATIENT
  Sex: Female
  Weight: 49 kg

DRUGS (23)
  1. CLOZAPINE [Suspect]
     Active Substance: CLOZAPINE
     Indication: Product used for unknown indication
     Dosage: TABLETS DOSAGE FORM
     Route: 065
  2. BENZTROPINE [Concomitant]
     Active Substance: BENZTROPINE
     Dosage: 2 EVERY 1 DAYS?AMOUNT: 1 MILLIGRAM
     Route: 048
  3. CALCIUM CARBONATE [Concomitant]
     Active Substance: CALCIUM CARBONATE
     Dosage: 2 EVERY 1 DAYS?AMOUNT: 500 MILLIGRAM?NOT SPECIFIED DOSAGE FORM
     Route: 048
  4. CLONIDINE [Concomitant]
     Active Substance: CLONIDINE
     Indication: Product used for unknown indication
     Dosage: 1 EVERY 1 DAYS?AMOUNT: 0.1 MILLIGRAM?NOT SPECIFIED DOSAGE FORM
     Route: 048
  5. CLONIDINE [Concomitant]
     Active Substance: CLONIDINE
     Indication: Product used for unknown indication
     Dosage: 1 EVERY 1 DAYS?AMOUNT: 0.1 MILLIGRAM?UNKNOWN DOSAGE FORM
     Route: 048
  6. CLONIDINE [Concomitant]
     Active Substance: CLONIDINE
     Indication: Product used for unknown indication
     Dosage: 1 EVERY 1 DAYS?AMOUNT: 0.5 MILLIGRAM?UNKNOWN DOSAGE FORM
     Route: 048
  7. CLONIDINE [Concomitant]
     Active Substance: CLONIDINE
     Indication: Product used for unknown indication
     Dosage: 1 EVERY 1 DAYS?AMOUNT: 12.5 MILLIGRAM
     Route: 048
  8. CLONIDINE [Concomitant]
     Active Substance: CLONIDINE
     Indication: Product used for unknown indication
     Dosage: TABLETS DOSAGE FORM
     Route: 065
  9. DIAZEPAM [Concomitant]
     Active Substance: DIAZEPAM
     Dosage: 1 EVERY 1 DAYS?AMOUNT: 500 MILLIGRAM
     Route: 048
  10. DIAZEPAM [Concomitant]
     Active Substance: DIAZEPAM
     Dosage: 1 EVERY 1 DAYS?AMOUNT: 500 MILLIGRAM?UNKNOWN DOSAGE FORM
     Route: 048
  11. FERROUS GLUCONATE [Concomitant]
     Active Substance: FERROUS GLUCONATE
     Dosage: 1 EVERY 1 DAYS?AMOUNT: 300 MILLIGRAM
     Route: 065
  12. GRAVOL [Concomitant]
     Active Substance: DIMENHYDRINATE
     Dosage: AMOUNT: 50 MILLIGRAM?NOT SPECIFIED DOSAGE FORM
     Route: 048
  13. LAMOTRIGINE [Concomitant]
     Active Substance: LAMOTRIGINE
     Dosage: 2 EVERY 1 DAYS?AMOUNT: 500 MILLIGRAM?TABLETS DOSAGE FORM
     Route: 048
  14. LEVETIRACETAM [Concomitant]
     Active Substance: LEVETIRACETAM
     Dosage: 2 EVERY 1 DAYS?AMOUNT: 500 MILLIGRAM?NOT SPECIFIED DOSAGE FORM
     Route: 048
  15. LORAZEPAM [Concomitant]
     Active Substance: LORAZEPAM
     Dosage: 2 EVERY 1 DAYS?AMOUNT: 2 MILLIGRAM?NOT SPECIFIED DOSAGE FORM
     Route: 048
  16. LOXAPINE HYDROCHLORIDE [Concomitant]
     Active Substance: LOXAPINE HYDROCHLORIDE
     Dosage: 2 EVERY 1 DAYS
     Route: 048
  17. MELATONIN [Concomitant]
     Active Substance: MELATONIN
     Dosage: 1 EVERY 1 DAYS?AMOUNT: 6 MILLIGRAM?NOT SPECIFIED DOSAGE FORM
     Route: 048
  18. OLANZAPINE [Concomitant]
     Active Substance: OLANZAPINE
     Dosage: 1 EVERY 1 DAYS?AMOUNT: 5 MILLIGRAM?NOT SPECIFIED DOSAGE FORM
     Route: 048
  19. OLANZAPINE [Concomitant]
     Active Substance: OLANZAPINE
     Dosage: 2 EVERY 1 DAYS?AMOUNT: 2 MILLIGRAM?UNKNOWN DOSAGE FORM
     Route: 048
  20. PRAZOSIN HYDROCHLORIDE [Concomitant]
     Active Substance: PRAZOSIN HYDROCHLORIDE
     Dosage: 1 EVERY 1 DAYS?AMOUNT: 2 MILLIGRAM
     Route: 048
  21. RABEPRAZOLE [Concomitant]
     Active Substance: RABEPRAZOLE
     Dosage: 2 EVERY 1 DAYS?AMOUNT: 20 MILLIGRAM
     Route: 048
  22. RITALIN [Concomitant]
     Active Substance: METHYLPHENIDATE HYDROCHLORIDE
     Dosage: 1 EVERY 1 DAYS?AMOUNT: 5 MILLIGRAM?UNKNOWN DOSAGE FORM
     Route: 048
  23. TYLENOL [Concomitant]
     Active Substance: ACETAMINOPHEN
     Dosage: 2 EVERY 1 DAYS?AMOUNT: 650 MILLIGRAM?NOT SPECIFIED DOSAGE FORM
     Route: 048

REACTIONS (3)
  - Death [Fatal]
  - Head banging [Fatal]
  - Subdural haemorrhage [Fatal]
